FAERS Safety Report 19870059 (Version 1)
Quarter: 2021Q3

REPORT INFORMATION
  Report Type: Spontaneous
  Country: JP (occurrence: JP)
  Receive Date: 20210922
  Receipt Date: 20210922
  Transmission Date: 20211014
  Serious: Yes (Other)
  Sender: FDA-Public Use
  Company Number: JP-ROCHE-2911542

PATIENT

DRUGS (8)
  1. LEXOTAN [Suspect]
     Active Substance: BROMAZEPAM
     Indication: PRODUCT USED FOR UNKNOWN INDICATION
     Route: 048
  2. MEILAX [Suspect]
     Active Substance: ETHYL LOFLAZEPATE
     Indication: PROPHYLAXIS
     Dosage: 2 MG, QID
     Route: 048
  3. RISPERIDONE. [Suspect]
     Active Substance: RISPERIDONE
     Indication: PRODUCT USED FOR UNKNOWN INDICATION
     Route: 065
  4. CONSTAN (JAPAN) [Suspect]
     Active Substance: ALPRAZOLAM
     Indication: PRODUCT USED FOR UNKNOWN INDICATION
     Route: 048
  5. RIVOTRIL [Suspect]
     Active Substance: CLONAZEPAM
     Indication: PROPHYLAXIS
     Dosage: RIVOTRIL 0.5 MG ONCE DAILY TILL 4 TIMES DAILY (HALF A TABLET/4 TIMES DAY) AS PROPHYLAXIS
     Route: 048
     Dates: start: 20210217
  6. MEILAX [Suspect]
     Active Substance: ETHYL LOFLAZEPATE
     Dosage: 1 MG, QID, 2 TABLETS
     Route: 048
  7. DEPAS (JAPAN) [Suspect]
     Active Substance: ETIZOLAM
     Indication: PRODUCT USED FOR UNKNOWN INDICATION
     Route: 048
  8. LULLAN [Suspect]
     Active Substance: PEROSPIRONE HYDROCHLORIDE
     Indication: PRODUCT USED FOR UNKNOWN INDICATION
     Dosage: 4 MG 1 TABLET UP TO 4 TIMES DAILY
     Route: 065
     Dates: start: 20210615

REACTIONS (5)
  - Stupor [Recovering/Resolving]
  - Dependence [Not Recovered/Not Resolved]
  - Drug abuse [Unknown]
  - Withdrawal syndrome [Unknown]
  - Hallucination, auditory [Unknown]

NARRATIVE: CASE EVENT DATE: 202106
